FAERS Safety Report 8444106-9 (Version None)
Quarter: 2012Q2

REPORT INFORMATION
  Report Type: 
  Country: None (occurrence: None)
  Receive Date: 20120618
  Receipt Date: 20120614
  Transmission Date: 20120825
  Serious: Yes (Hospitalization, Other)
  Sender: FDA-Public Use
  Company Number: PHEH2006US01247

PATIENT
  Sex: Male
  Weight: 175 kg

DRUGS (11)
  1. LIPITOR [Concomitant]
  2. ATENOLOL [Concomitant]
  3. LOVAZA [Concomitant]
  4. FLOMAX [Concomitant]
  5. ASPIRIN [Concomitant]
  6. XANAX [Concomitant]
  7. FOLIC ACID [Concomitant]
  8. ZOMETA [Suspect]
     Indication: HYPERCALCAEMIA OF MALIGNANCY
     Route: 042
     Dates: start: 20040101
  9. PLAVIX [Concomitant]
  10. VITAMIN B-12 [Concomitant]
  11. VESICARE [Concomitant]

REACTIONS (43)
  - OSTEOMYELITIS [None]
  - LOSS OF CONSCIOUSNESS [None]
  - PANCYTOPENIA [None]
  - AMNESIA [None]
  - DEAFNESS [None]
  - CORONARY ARTERY DISEASE [None]
  - ATELECTASIS [None]
  - BLOOD PRESSURE INCREASED [None]
  - SPINAL OSTEOARTHRITIS [None]
  - PURULENT DISCHARGE [None]
  - CULTURE [None]
  - HYPERLIPIDAEMIA [None]
  - OEDEMA [None]
  - BIOPSY BONE ABNORMAL [None]
  - PRIMARY SEQUESTRUM [None]
  - INSOMNIA [None]
  - SWELLING [None]
  - TOOTHACHE [None]
  - INFECTION [None]
  - BONE DISORDER [None]
  - BONE DENSITY DECREASED [None]
  - FALL [None]
  - LUNG INFILTRATION [None]
  - CEREBROVASCULAR ACCIDENT [None]
  - DEMENTIA [None]
  - COUGH [None]
  - SEPSIS [None]
  - MENTAL STATUS CHANGES [None]
  - PAIN IN JAW [None]
  - CYST [None]
  - ARTERIOSCLEROSIS [None]
  - ATROPHY [None]
  - SCOLIOSIS [None]
  - ANAEMIA [None]
  - DIVERTICULUM INTESTINAL [None]
  - URINARY TRACT INFECTION [None]
  - OSTEONECROSIS OF JAW [None]
  - FISTULA [None]
  - COGNITIVE DISORDER [None]
  - NUCLEAR MAGNETIC RESONANCE IMAGING BRAIN [None]
  - AREFLEXIA [None]
  - OESOPHAGITIS ULCERATIVE [None]
  - PEPTIC ULCER [None]
